FAERS Safety Report 8858524 (Version 1)
Quarter: 2012Q4

REPORT INFORMATION
  Report Type: 
  Country: US (occurrence: US)
  Receive Date: 20121024
  Receipt Date: 20121024
  Transmission Date: 20130627
  Serious: No
  Sender: FDA-Public Use
  Company Number: US-ASTRAZENECA-2012SE18510

PATIENT
  Age: 70 Year
  Sex: Female
  Weight: 86.2 kg

DRUGS (7)
  1. TOPROL XL [Suspect]
     Indication: HYPERTENSION
     Route: 048
  2. SEROQUEL [Suspect]
     Indication: SCHIZOAFFECTIVE DISORDER
     Route: 048
  3. HYDROCHLOROTHIAZIDE [Concomitant]
     Indication: HYPERTENSION
  4. GEODON [Concomitant]
  5. AMBIENT [Concomitant]
  6. ARICEPT [Concomitant]
  7. CLONAZEPAM [Concomitant]

REACTIONS (5)
  - Increased appetite [Unknown]
  - Vascular dementia [Unknown]
  - Somnolence [Unknown]
  - Weight increased [Unknown]
  - Lethargy [Unknown]
